FAERS Safety Report 6070663-6 (Version None)
Quarter: 2009Q1

REPORT INFORMATION
  Report Type: 
  Country: None (occurrence: None)
  Receive Date: 20090209
  Receipt Date: 20090204
  Transmission Date: 20090719
  Serious: Yes (Other)
  Sender: FDA-Public Use
  Company Number: US-JNJFOC-20080906435

PATIENT
  Sex: Male
  Weight: 89.81 kg

DRUGS (3)
  1. IMODIUM A-D [Suspect]
     Route: 048
  2. IMODIUM A-D [Suspect]
     Indication: DIARRHOEA
     Dosage: TAKING 6-9 TABLETS DAILY
     Route: 048
  3. ACIDOPHILUS [Concomitant]

REACTIONS (3)
  - GASTROINTESTINAL OEDEMA [None]
  - PAIN IN EXTREMITY [None]
  - TESTICULAR SWELLING [None]
